FAERS Safety Report 23885943 (Version 2)
Quarter: 2024Q2

REPORT INFORMATION
  Report Type: Report from Study
  Country: TR (occurrence: TR)
  Receive Date: 20240522
  Receipt Date: 20240527
  Transmission Date: 20240716
  Serious: Yes (Life-Threatening, Other)
  Sender: FDA-Public Use
  Company Number: TR-PFIZER INC-PV202400065922

PATIENT

DRUGS (1)
  1. INFLIXIMAB [Suspect]
     Active Substance: INFLIXIMAB
     Indication: Behcet^s syndrome
     Dosage: 5 MG/KG AS A LOADING DOSE AT 0.2-6 WEEKS,FOLLOWED BY A ^MAINTENANCE PHASE EVERY 6-8 WEEKS
     Route: 042

REACTIONS (1)
  - Cardiac failure [Unknown]
